FAERS Safety Report 25847255 (Version 3)
Quarter: 2025Q4

REPORT INFORMATION
  Report Type: Spontaneous
  Country: US (occurrence: US)
  Receive Date: 20250925
  Receipt Date: 20251024
  Transmission Date: 20260117
  Serious: No
  Sender: BIOVITRUM
  Company Number: US-BIOVITRUM-2025-US-013028

PATIENT
  Age: 70 Year
  Sex: Female

DRUGS (5)
  1. KINERET [Suspect]
     Active Substance: ANAKINRA
     Indication: Cryopyrin associated periodic syndrome
     Dosage: ONCE A DAY (QD)
     Route: 058
     Dates: start: 20250918
  2. KINERET [Suspect]
     Active Substance: ANAKINRA
     Dosage: ONCE A DAY?UNIT: 30 DAY SUPPLY
  3. KINERET [Suspect]
     Active Substance: ANAKINRA
     Dosage: ONCE DAILY
  4. PREDNISONE [Concomitant]
     Active Substance: PREDNISONE
     Indication: Pruritus
  5. HYDROCORTISONE [Concomitant]
     Active Substance: HYDROCORTISONE
     Indication: Pruritus

REACTIONS (10)
  - Pruritus [Unknown]
  - Intentional product misuse [Not Recovered/Not Resolved]
  - Condition aggravated [Unknown]
  - Injection site rash [Unknown]
  - Injection site erythema [Unknown]
  - Injection site discolouration [Unknown]
  - Injection site pruritus [Unknown]
  - Injection site swelling [Unknown]
  - Injection site pain [Unknown]
  - Oropharyngeal pain [Recovered/Resolved]

NARRATIVE: CASE EVENT DATE: 20250918
